FAERS Safety Report 5122180-5 (Version None)
Quarter: 2006Q4

REPORT INFORMATION
  Report Type: 
  Country: None (occurrence: None)
  Receive Date: 20061006
  Receipt Date: 20040114
  Transmission Date: 20070319
  Serious: Yes (Death, Hospitalization)
  Sender: FDA-Public Use
  Company Number: US-ABBOTT-04P-163-0247515-00

PATIENT
  Sex: Male

DRUGS (9)
  1. RITONAVIR SOFT GELATIN CAPSULES [Suspect]
     Indication: HIV INFECTION
     Route: 048
     Dates: start: 20010404, end: 20010424
  2. TIPRANAVIR [Concomitant]
     Indication: HIV INFECTION
     Dates: start: 20010404, end: 20010424
  3. STAVUDINE [Concomitant]
     Indication: HIV INFECTION
     Dosage: 800 MILLIGRAM
     Dates: start: 19990601, end: 20010503
  4. STAVUDINE [Concomitant]
     Dates: start: 20010510
  5. DIDANOSINE [Concomitant]
     Indication: HIV INFECTION
     Dosage: 400 MGS
     Dates: start: 19990601, end: 20010503
  6. DIDANOSINE [Concomitant]
     Dates: start: 20010510
  7. NEVIRAPINE [Concomitant]
     Indication: HIV INFECTION
     Dosage: 400 MGS.
     Dates: start: 19990601, end: 20010503
  8. NEVIRAPINE [Concomitant]
     Dates: start: 20010510
  9. SETRALINE HCL [Concomitant]
     Indication: MAJOR DEPRESSION
     Dates: start: 19990601

REACTIONS (26)
  - ANOREXIA [None]
  - ASTHENIA [None]
  - BLOOD URIC ACID INCREASED [None]
  - BRAIN STEM INFARCTION [None]
  - CARDIAC ARREST [None]
  - CEREBRAL INFARCTION [None]
  - DEHYDRATION [None]
  - DEPRESSED LEVEL OF CONSCIOUSNESS [None]
  - DYSPNOEA [None]
  - FLANK PAIN [None]
  - HAEMODIALYSIS [None]
  - HEPATIC FUNCTION ABNORMAL [None]
  - INTUBATION [None]
  - LACTIC ACIDOSIS [None]
  - LIFE SUPPORT [None]
  - LIVER FUNCTION TEST ABNORMAL [None]
  - LUNG INFECTION [None]
  - MIOSIS [None]
  - NAUSEA [None]
  - RENAL FAILURE ACUTE [None]
  - RESPIRATORY DISTRESS [None]
  - RESPIRATORY FAILURE [None]
  - RESUSCITATION [None]
  - SHOCK [None]
  - TREATMENT NONCOMPLIANCE [None]
  - WHITE BLOOD CELL COUNT INCREASED [None]
